FAERS Safety Report 7719364-6 (Version None)
Quarter: 2011Q3

REPORT INFORMATION
  Report Type: 
  Country: None (occurrence: None)
  Receive Date: 20110825
  Receipt Date: 20110810
  Transmission Date: 20111222
  Serious: Yes (Other)
  Sender: FDA-Public Use
  Company Number: JPI-P-016573

PATIENT
  Age: 13 Year
  Sex: Male

DRUGS (3)
  1. XYREM [Suspect]
     Dosage: (TITRATING DOSE), ORAL 6 GM (3GM, 2 IN 1 D) , ORAL
     Dates: start: 20110101
  2. XYREM [Suspect]
     Dosage: (TITRATING DOSE), ORAL 6 GM (3GM, 2 IN 1 D) , ORAL
     Dates: start: 20110101, end: 20110101
  3. XYREM [Suspect]
     Indication: CATAPLEXY
     Dosage: 4.5 GM (2.25 GM, 2 IN 1 D) , ORAL
     Route: 048
     Dates: start: 20110719

REACTIONS (1)
  - CONVULSION [None]
